FAERS Safety Report 10003320 (Version 3)
Quarter: 2015Q3

REPORT INFORMATION
  Report Type: Spontaneous
  Country: US (occurrence: US)
  Receive Date: 20140312
  Receipt Date: 20150812
  Transmission Date: 20151125
  Serious: No
  Sender: FDA-Public Use
  Company Number: US-GILEAD-2012-0056834

PATIENT
  Age: 42 Year
  Sex: Male

DRUGS (5)
  1. TYVASO [Suspect]
     Active Substance: TREPROSTINIL
  2. LOSARTAN. [Suspect]
     Active Substance: LOSARTAN
     Indication: SLEEP APNOEA SYNDROME
  3. LETAIRIS [Suspect]
     Active Substance: AMBRISENTAN
     Indication: SLEEP APNOEA SYNDROME
  4. LOSARTAN. [Suspect]
     Active Substance: LOSARTAN
     Indication: PULMONARY HYPERTENSION
  5. LETAIRIS [Suspect]
     Active Substance: AMBRISENTAN
     Indication: PULMONARY HYPERTENSION
     Dosage: 5 MG, UNK
     Route: 048
     Dates: start: 20120611

REACTIONS (2)
  - Headache [Unknown]
  - Hypotension [Unknown]
